FAERS Safety Report 10181412 (Version 3)
Quarter: 2014Q3

REPORT INFORMATION
  Report Type: Report from Study
  Country: FR (occurrence: FR)
  Receive Date: 20140519
  Receipt Date: 20140926
  Transmission Date: 20150326
  Serious: Yes (Other)
  Sender: FDA-Public Use
  Company Number: FR-BRISTOL-MYERS SQUIBB COMPANY-20740734

PATIENT
  Age: 29 Year
  Sex: Male
  Weight: 82 kg

DRUGS (2)
  1. SPRYCEL [Suspect]
     Active Substance: DASATINIB
     Indication: CHRONIC MYELOID LEUKAEMIA
     Dosage: 14AUG-10SEP12?RESUMED:21SEP12 AT 100MG UNTIL 12MAR14.?INCR TO 140MG ON 13MAR14?LAST DOSE:07MAY14
     Route: 048
     Dates: start: 20120814, end: 20140507
  2. HYDREA [Concomitant]
     Active Substance: HYDROXYUREA
     Dates: start: 20120804

REACTIONS (1)
  - Lymphadenopathy [Recovered/Resolved]

NARRATIVE: CASE EVENT DATE: 20140507
